FAERS Safety Report 21343339 (Version 1)
Quarter: 2022Q3

REPORT INFORMATION
  Report Type: Spontaneous
  Country: FR (occurrence: FR)
  Receive Date: 20220916
  Receipt Date: 20220916
  Transmission Date: 20221027
  Serious: Yes (Hospitalization)
  Sender: FDA-Public Use
  Company Number: None

PATIENT
  Age: 82 Year
  Sex: Female

DRUGS (5)
  1. PAROXETINE HYDROCHLORIDE HEMIHYDRATE [Suspect]
     Active Substance: PAROXETINE HYDROCHLORIDE HEMIHYDRATE
     Indication: Depression
     Dosage: 20 MILLIGRAM DAILY;  20MG EVERY MORNING, CHLORHYDRATE DE PAROXETINE HEMIHYDRATE
     Dates: start: 2018
  2. CIPROFLOXACIN [Concomitant]
     Active Substance: CIPROFLOXACIN
     Indication: Urinary tract infection
     Dosage: UNIT DOSE : 500 MG  , FREQUENCY TIME : 12 HOUR  , DURATION : 7 DAYS
     Dates: start: 20220809, end: 20220816
  3. KARDEGIC [Concomitant]
     Active Substance: ASPIRIN DL-LYSINE
     Indication: Product used for unknown indication
     Dosage: FORM STRENGTH : 75 MG, POWDER FOR ORAL SOLUTION IN SACHET-DOSE
  4. ALPRAZOLAM [Concomitant]
     Active Substance: ALPRAZOLAM
     Indication: Product used for unknown indication
  5. ZOPICLONE [Concomitant]
     Active Substance: ZOPICLONE
     Indication: Product used for unknown indication

REACTIONS (3)
  - Hepatic cytolysis [Not Recovered/Not Resolved]
  - Transaminases increased [Not Recovered/Not Resolved]
  - Hepatic steatosis [Not Recovered/Not Resolved]

NARRATIVE: CASE EVENT DATE: 20190101
